FAERS Safety Report 11387555 (Version 1)
Quarter: 2015Q3

REPORT INFORMATION
  Report Type: Spontaneous
  Country: US (occurrence: US)
  Receive Date: 20150817
  Receipt Date: 20150817
  Transmission Date: 20151125
  Serious: Yes (Hospitalization)
  Sender: FDA-Public Use
  Company Number: US-ACTAVIS-2015-17151

PATIENT
  Age: 55 Year
  Sex: Male

DRUGS (2)
  1. MIRTAZAPINE (ACTAVIS LABORATORIES FL) [Suspect]
     Active Substance: MIRTAZAPINE
     Indication: MAJOR DEPRESSION
     Dosage: 30 MG, QPM (NIGHTLY)
     Route: 065
  2. CITALOPRAM HYDROBROMIDE (WATSON LABORATORIES) [Suspect]
     Active Substance: CITALOPRAM HYDROBROMIDE
     Indication: MAJOR DEPRESSION
     Dosage: 20 MG, DAILY
     Route: 065

REACTIONS (2)
  - Mania [Recovering/Resolving]
  - Drug ineffective [Recovering/Resolving]
